FAERS Safety Report 5124291-7 (Version None)
Quarter: 2006Q3

REPORT INFORMATION
  Report Type: 
  Country: None (occurrence: None)
  Receive Date: 20060816
  Receipt Date: 20060515
  Transmission Date: 20061208
  Serious: No
  Sender: FDA-Public Use
  Company Number: US200605002919

PATIENT
  Age: 54 Year
  Sex: Male

DRUGS (3)
  1. CIALIS [Suspect]
     Indication: ERECTILE DYSFUNCTION
     Dosage: 20 MG
     Route: 065
  2. TRICOR [Concomitant]
  3. ZOCOR [Concomitant]

REACTIONS (2)
  - DYSPEPSIA [None]
  - NASAL CONGESTION [None]
